FAERS Safety Report 12222984 (Version 2)
Quarter: 2016Q2

REPORT INFORMATION
  Report Type: Report from Study
  Country: CL (occurrence: CL)
  Receive Date: 20160330
  Receipt Date: 20160627
  Transmission Date: 20160815
  Serious: Yes (Other)
  Sender: FDA-Public Use
  Company Number: CL-ABBVIE-16K-034-1592237-00

PATIENT
  Age: 42 Year
  Sex: Male

DRUGS (3)
  1. CLONAZEPAM. [Concomitant]
     Active Substance: CLONAZEPAM
     Indication: DEPRESSION
  2. DOXEPINE [Concomitant]
     Active Substance: DOXEPIN
     Indication: DEPRESSION
  3. HUMIRA [Suspect]
     Active Substance: ADALIMUMAB
     Indication: ANKYLOSING SPONDYLITIS
     Route: 058
     Dates: start: 20151229

REACTIONS (6)
  - Vomiting [Not Recovered/Not Resolved]
  - Ear infection [Recovering/Resolving]
  - Depression [Recovering/Resolving]
  - Tympanic membrane perforation [Not Recovered/Not Resolved]
  - Nausea [Recovering/Resolving]
  - Vertigo [Recovering/Resolving]

NARRATIVE: CASE EVENT DATE: 20160126
